FAERS Safety Report 6093844-4 (Version None)
Quarter: 2009Q1

REPORT INFORMATION
  Report Type: 
  Country: None (occurrence: None)
  Receive Date: 20090224
  Receipt Date: 20090224
  Transmission Date: 20090719
  Serious: Yes (Life-Threatening, Hospitalization)
  Sender: FDA-Public Use
  Company Number: None

PATIENT
  Sex: Female
  Weight: 61 kg

DRUGS (1)
  1. ZITHROMAX [Suspect]
     Dates: start: 20090209, end: 20090212

REACTIONS (2)
  - HEPATIC FAILURE [None]
  - RASH [None]
